FAERS Safety Report 21767720 (Version 4)
Quarter: 2023Q1

REPORT INFORMATION
  Report Type: Spontaneous
  Country: JP (occurrence: None)
  Receive Date: 20221222
  Receipt Date: 20230327
  Transmission Date: 20230418
  Serious: Yes (Death)
  Sender: FDA-Public Use
  Company Number: 2022A413408

PATIENT
  Age: 91 Year
  Sex: Male
  Weight: 52 kg

DRUGS (18)
  1. ONDEXXYA [Suspect]
     Active Substance: ANDEXANET ALFA
     Indication: Head injury
     Dosage: INTRAVENOUS ADMINISTRATION OF 400 MG AT A RATE OF 30 MG/MIN., WITH SUBSEQUENT INTRAVENOUS ADMINIS...
     Route: 042
     Dates: start: 20221216, end: 20221216
  2. XARELTO [Suspect]
     Active Substance: RIVAROXABAN
     Indication: Atrial fibrillation
     Route: 048
     Dates: end: 20221216
  3. CARBAZOCHROME SODIUM SULFONATE [Suspect]
     Active Substance: CARBAZOCHROME SODIUM SULFONATE
     Indication: Subarachnoid haemorrhage
     Route: 041
     Dates: start: 20221215, end: 20221216
  4. CARBAZOCHROME SODIUM SULFONATE [Suspect]
     Active Substance: CARBAZOCHROME SODIUM SULFONATE
     Indication: Brain contusion
     Route: 041
     Dates: start: 20221215, end: 20221216
  5. CARBAZOCHROME SODIUM SULFONATE [Suspect]
     Active Substance: CARBAZOCHROME SODIUM SULFONATE
     Indication: Head injury
     Route: 041
     Dates: start: 20221215, end: 20221216
  6. CARBAZOCHROME SODIUM SULFONATE [Suspect]
     Active Substance: CARBAZOCHROME SODIUM SULFONATE
     Indication: Subcutaneous haematoma
     Route: 041
     Dates: start: 20221215, end: 20221216
  7. TRANSAMIN [Suspect]
     Active Substance: TRANEXAMIC ACID
     Indication: Subarachnoid haemorrhage
     Route: 041
     Dates: start: 20221215, end: 20221216
  8. TRANSAMIN [Suspect]
     Active Substance: TRANEXAMIC ACID
     Indication: Brain contusion
     Route: 041
     Dates: start: 20221215, end: 20221216
  9. TRANSAMIN [Suspect]
     Active Substance: TRANEXAMIC ACID
     Indication: Head injury
     Route: 041
     Dates: start: 20221215, end: 20221216
  10. TRANSAMIN [Suspect]
     Active Substance: TRANEXAMIC ACID
     Indication: Subcutaneous haematoma
     Route: 041
     Dates: start: 20221215, end: 20221216
  11. DAPAGLIFLOZIN [Concomitant]
     Active Substance: DAPAGLIFLOZIN
     Indication: Diabetes mellitus
     Route: 048
     Dates: end: 20221216
  12. AZOSEMIDE [Concomitant]
     Active Substance: AZOSEMIDE
     Indication: Cardiac failure chronic
     Route: 048
     Dates: end: 20221216
  13. SPIRONOLACTONE [Concomitant]
     Active Substance: SPIRONOLACTONE
     Indication: Cardiac failure chronic
     Route: 048
     Dates: end: 20221216
  14. BISOPROLOL [Concomitant]
     Active Substance: BISOPROLOL
     Indication: Cardiac failure chronic
     Route: 048
     Dates: end: 20221216
  15. VONOPRAZAN FUMARATE [Concomitant]
     Active Substance: VONOPRAZAN FUMARATE
     Indication: Prophylaxis against gastrointestinal ulcer
     Route: 048
     Dates: end: 20221216
  16. BICALUTAMIDE [Concomitant]
     Active Substance: BICALUTAMIDE
     Indication: Cardiac failure chronic
     Route: 048
     Dates: end: 20221216
  17. ROCALTROL [Concomitant]
     Active Substance: CALCITRIOL
     Indication: Cardiac failure chronic
     Route: 048
     Dates: end: 20221216
  18. SODIUM FERROUS CITRATE [Concomitant]
     Active Substance: SODIUM FERROUS CITRATE
     Indication: Anaemia
     Route: 048
     Dates: start: 20210928, end: 20221216

REACTIONS (1)
  - Embolic stroke [Fatal]

NARRATIVE: CASE EVENT DATE: 20221217
